FAERS Safety Report 9373975 (Version 1)
Quarter: 2013Q2

REPORT INFORMATION
  Report Type: Spontaneous
  Country: CN (occurrence: CN)
  Receive Date: 20130628
  Receipt Date: 20130628
  Transmission Date: 20140414
  Serious: Yes (Other)
  Sender: FDA-Public Use
  Company Number: CN-ABBOTT-13X-035-1110692-00

PATIENT
  Age: 47 Year
  Sex: Male
  Weight: 50 kg

DRUGS (4)
  1. CLARITHROMYCIN [Suspect]
     Indication: GASTRIC ULCER
     Route: 048
     Dates: start: 20120521, end: 20120524
  2. CLARITHROMYCIN [Suspect]
     Indication: HELICOBACTER INFECTION
  3. AMOXICILLIN [Suspect]
     Indication: HELICOBACTER INFECTION
     Dates: start: 20120521, end: 20120524
  4. NEXIUM [Suspect]
     Indication: HELICOBACTER INFECTION
     Dates: start: 20120521, end: 20120524

REACTIONS (4)
  - Asthenia [Recovered/Resolved]
  - Dizziness [Recovered/Resolved]
  - Syncope [Recovered/Resolved]
  - Dizziness [Recovered/Resolved]
